FAERS Safety Report 5484146-5 (Version None)
Quarter: 2007Q4

REPORT INFORMATION
  Report Type: 
  Country: None (occurrence: None)
  Receive Date: 20071012
  Receipt Date: 20070810
  Transmission Date: 20080405
  Serious: No
  Sender: FDA-Public Use
  Company Number: US-ASTRAZENECA-2007UW19540

PATIENT
  Age: 46 Year
  Sex: Male
  Weight: 158.8 kg

DRUGS (9)
  1. SYMBICORT [Suspect]
     Indication: ASTHMA
     Dosage: 160/4.5 MG
     Route: 055
  2. ALBUTEROL [Concomitant]
     Indication: ASTHMA
  3. DUONEB [Concomitant]
     Dosage: 1-2 TIMES/DAY
  4. SINGULAIR [Concomitant]
     Route: 048
  5. NASONEX [Concomitant]
  6. BLOOD PRESSURE MEDICINE [Concomitant]
     Indication: HYPERTENSION
  7. INSULIN [Concomitant]
     Indication: DIABETES MELLITUS
  8. CHOLESTEROL MEDICATION [Concomitant]
     Indication: BLOOD CHOLESTEROL
  9. DIURETIC [Concomitant]

REACTIONS (1)
  - DYSPNOEA [None]
